FAERS Safety Report 4820804-0 (Version None)
Quarter: 2005Q4

REPORT INFORMATION
  Report Type: 
  Country: None (occurrence: None)
  Receive Date: 20051104
  Receipt Date: 20051025
  Transmission Date: 20060501
  Serious: Yes (Hospitalization)
  Sender: FDA-Public Use
  Company Number: US-JNJFOC-20051005956

PATIENT
  Sex: Female
  Weight: 63.28 kg

DRUGS (8)
  1. TYLENOL (CAPLET) [Suspect]
     Route: 048
  2. TYLENOL (CAPLET) [Suspect]
     Dosage: 12 DOSAGE FORMS OVER 48 HOURS
     Route: 048
  3. ELLENCE [Suspect]
     Indication: BREAST CANCER FEMALE
     Route: 042
  4. CYCLOPHOSPHAMIDE [Suspect]
     Indication: BREAST CANCER FEMALE
     Route: 042
  5. COUMADIN [Concomitant]
     Route: 048
  6. XALATAN [Concomitant]
  7. DIOVAN [Concomitant]
     Route: 048
  8. ATIVAN [Concomitant]
     Route: 048

REACTIONS (8)
  - ALANINE AMINOTRANSFERASE INCREASED [None]
  - ASPARTATE AMINOTRANSFERASE INCREASED [None]
  - DRUG INEFFECTIVE [None]
  - FEBRILE NEUTROPENIA [None]
  - MUCOSAL INFLAMMATION [None]
  - STOMATITIS [None]
  - TRANSAMINASES INCREASED [None]
  - WHITE BLOOD CELL COUNT DECREASED [None]
